FAERS Safety Report 25880913 (Version 1)
Quarter: 2025Q4

REPORT INFORMATION
  Report Type: Spontaneous
  Country: CN (occurrence: CN)
  Receive Date: 20251004
  Receipt Date: 20251004
  Transmission Date: 20260117
  Serious: Yes (Death, Life-Threatening, Hospitalization, Disabling, Other)
  Sender: AMGEN
  Company Number: CN-AMGEN-CHNSP2025195859

PATIENT

DRUGS (12)
  1. PANITUMUMAB [Suspect]
     Active Substance: PANITUMUMAB
     Indication: Hypomagnesaemia
     Dosage: UNK
     Route: 065
  2. PANITUMUMAB [Suspect]
     Active Substance: PANITUMUMAB
     Indication: Off label use
  3. DENOSUMAB [Suspect]
     Active Substance: DENOSUMAB
     Indication: Hypomagnesaemia
     Dosage: UNK
     Route: 065
  4. DENOSUMAB [Suspect]
     Active Substance: DENOSUMAB
     Indication: Off label use
  5. FILGRASTIM [Suspect]
     Active Substance: FILGRASTIM
     Indication: Hypomagnesaemia
     Dosage: UNK
     Route: 065
  6. FILGRASTIM [Suspect]
     Active Substance: FILGRASTIM
     Indication: Off label use
  7. BEVACIZUMAB [Suspect]
     Active Substance: BEVACIZUMAB
     Indication: Hypomagnesaemia
     Dosage: UNK
     Route: 065
  8. BEVACIZUMAB [Suspect]
     Active Substance: BEVACIZUMAB
     Indication: Off label use
  9. LEUCOVORIN CALCIUM [Concomitant]
     Active Substance: LEUCOVORIN CALCIUM
     Indication: Hypomagnesaemia
     Dosage: UNK
     Route: 065
  10. FLUOROURACIL [Concomitant]
     Active Substance: FLUOROURACIL
     Indication: Hypomagnesaemia
     Dosage: UNK
     Route: 065
  11. OXALIPLATIN [Concomitant]
     Active Substance: OXALIPLATIN
     Indication: Hypomagnesaemia
     Dosage: UNK
     Route: 065
  12. CETUXIMAB [Concomitant]
     Active Substance: CETUXIMAB
     Indication: Hypomagnesaemia
     Dosage: UNK
     Route: 065

REACTIONS (5)
  - Death [Fatal]
  - Ill-defined disorder [Unknown]
  - Adverse drug reaction [Unknown]
  - Disability [Unknown]
  - Off label use [Unknown]
